FAERS Safety Report 12683898 (Version 3)
Quarter: 2016Q4

REPORT INFORMATION
  Report Type: Spontaneous
  Country: BR (occurrence: BR)
  Receive Date: 20160825
  Receipt Date: 20161007
  Transmission Date: 20170207
  Serious: Yes (Other)
  Sender: FDA-Public Use
  Company Number: BR-SHIRE-BR201610965

PATIENT
  Age: 52 Year
  Sex: Female
  Weight: 59 kg

DRUGS (1)
  1. MESACOL MMX [Suspect]
     Active Substance: MESALAMINE
     Indication: RADIATION PROCTITIS
     Dosage: 1200 MG, 2X/DAY:BID (EVERY 12 HOURS AT 7AM AND 7 PM)
     Route: 048
     Dates: start: 201606, end: 20160815

REACTIONS (14)
  - Product use issue [Recovered/Resolved]
  - Pain [Not Recovered/Not Resolved]
  - Hypertension [Recovered/Resolved]
  - Neck pain [Recovered/Resolved]
  - Pyrexia [Recovered/Resolved]
  - Malaise [Recovered/Resolved]
  - Erythema [Recovered/Resolved]
  - Migraine [Recovered/Resolved]
  - Musculoskeletal stiffness [Recovered/Resolved]
  - Face oedema [Recovered/Resolved]
  - Yellow skin [Recovered/Resolved]
  - Syncope [Recovered/Resolved]
  - Mass [Not Recovered/Not Resolved]
  - Dizziness [Recovered/Resolved]

NARRATIVE: CASE EVENT DATE: 201606
